FAERS Safety Report 12222522 (Version 1)
Quarter: 2016Q1

REPORT INFORMATION
  Report Type: Spontaneous
  Country: US (occurrence: US)
  Receive Date: 20160330
  Receipt Date: 20160330
  Transmission Date: 20160526
  Serious: No
  Sender: FDA-Public Use
  Company Number: US-MYLANLABS-2015M1043599

PATIENT
  Age: 94 Year
  Sex: Female

DRUGS (2)
  1. FENTANYL. [Suspect]
     Active Substance: FENTANYL
     Indication: PAIN
     Dosage: 12.5 ?G, QH CHANGED Q72H
     Route: 062
     Dates: start: 20151127, end: 20151130
  2. FENTANYL. [Suspect]
     Active Substance: FENTANYL
     Dosage: 25?G, QH (TWO 12.5UG/HR PATCHES EVERY 72 HRS)
     Route: 062
     Dates: start: 20151130

REACTIONS (2)
  - Expired product administered [Not Recovered/Not Resolved]
  - Drug ineffective [Not Recovered/Not Resolved]

NARRATIVE: CASE EVENT DATE: 20151130
